FAERS Safety Report 10619383 (Version 3)
Quarter: 2014Q4

REPORT INFORMATION
  Report Type: Report from Study
  Country: CA (occurrence: CA)
  Receive Date: 20141202
  Receipt Date: 20141204
  Transmission Date: 20150529
  Serious: Yes (Other)
  Sender: FDA-Public Use
  Company Number: PHHY2014CA080841

PATIENT
  Age: 39 Year
  Sex: Male

DRUGS (1)
  1. GILENYA [Suspect]
     Active Substance: FINGOLIMOD HYDROCHLORIDE
     Indication: RELAPSING-REMITTING MULTIPLE SCLEROSIS
     Dosage: 0.5 MG, QD
     Route: 048
     Dates: start: 20140430

REACTIONS (7)
  - Tremor [Unknown]
  - Proctalgia [Unknown]
  - Constipation [Unknown]
  - Cold sweat [Unknown]
  - Diarrhoea [Unknown]
  - Fistula [Unknown]
  - Malaise [Unknown]

NARRATIVE: CASE EVENT DATE: 20140627
